FAERS Safety Report 12185229 (Version 1)
Quarter: 2016Q1

REPORT INFORMATION
  Report Type: Report from Study
  Country: US (occurrence: US)
  Receive Date: 20160316
  Receipt Date: 20160316
  Transmission Date: 20160526
  Serious: Yes (Other)
  Sender: FDA-Public Use
  Company Number: US-BIOGEN-2016BI00202325

PATIENT
  Sex: Male

DRUGS (1)
  1. AVONEX [Suspect]
     Active Substance: INTERFERON BETA-1A
     Indication: MULTIPLE SCLEROSIS
     Route: 030
     Dates: start: 20030418

REACTIONS (4)
  - Lacunar infarction [Recovered/Resolved with Sequelae]
  - Dizziness postural [Not Recovered/Not Resolved]
  - Vestibular disorder [Unknown]
  - Atrial septal defect [Recovered/Resolved]
